FAERS Safety Report 5317354-4 (Version None)
Quarter: 2007Q2

REPORT INFORMATION
  Report Type: 
  Country: None (occurrence: None)
  Receive Date: 20070504
  Receipt Date: 20070425
  Transmission Date: 20071010
  Serious: No
  Sender: FDA-Public Use
  Company Number: US-GENENTECH-240274

PATIENT
  Sex: Female

DRUGS (1)
  1. NUTROPIN AQ [Suspect]
     Indication: TURNER'S SYNDROME
     Dosage: UNK, UNK
     Route: 058
     Dates: start: 19990101, end: 20050101

REACTIONS (1)
  - BACK PAIN [None]
